FAERS Safety Report 5827578-5 (Version None)
Quarter: 2008Q3

REPORT INFORMATION
  Report Type: 
  Country: None (occurrence: None)
  Receive Date: 20080730
  Receipt Date: 20080124
  Transmission Date: 20090109
  Serious: No
  Sender: FDA-Public Use
  Company Number: US-BOEHRINGER INGELHEIM GMBH, GERMANY-2007-BP-04393BP

PATIENT
  Sex: Female
  Weight: 89 kg

DRUGS (19)
  1. MIRAPEX [Suspect]
     Indication: RESTLESS LEGS SYNDROME
     Route: 048
     Dates: start: 20011213, end: 20061020
  2. REQUIP [Concomitant]
     Indication: RESTLESS LEGS SYNDROME
     Dates: start: 20060801
  3. CLONAZEPAM [Concomitant]
     Indication: DEPRESSION
     Dates: start: 20060901
  4. CLONAZEPAM [Concomitant]
     Indication: RESTLESS LEGS SYNDROME
  5. ALUPENT INHALER [Concomitant]
     Dates: start: 20010501
  6. LIPITOR [Concomitant]
     Indication: HYPERCHOLESTEROLAEMIA
     Dates: start: 20010301
  7. EVISTA [Concomitant]
  8. AMBIEN [Concomitant]
     Dates: start: 20020901
  9. ATENOLOL [Concomitant]
     Indication: ATRIAL FIBRILLATION
  10. SINGULAIR [Concomitant]
     Indication: ASTHMA
     Dates: start: 20011001
  11. COUMADIN [Concomitant]
     Indication: ATRIAL FIBRILLATION
  12. ADVAIR DISKUS 100/50 [Concomitant]
     Indication: ASTHMA
     Dates: start: 20060101
  13. WELLBUTRIN [Concomitant]
     Indication: DEPRESSION
     Dates: start: 20061001
  14. LUNESTA [Concomitant]
     Indication: INSOMNIA
     Dates: start: 20051101
  15. TYLENOL PM [Concomitant]
  16. BENADRYL [Concomitant]
  17. VANCERIL [Concomitant]
     Dates: start: 20010301
  18. VIOXX [Concomitant]
     Dates: start: 20040201
  19. LEXAPRO [Concomitant]
     Indication: ANXIETY
     Dates: start: 20061201

REACTIONS (5)
  - DEPRESSION [None]
  - OBSESSIVE-COMPULSIVE DISORDER [None]
  - PATHOLOGICAL GAMBLING [None]
  - SUICIDAL IDEATION [None]
  - WEIGHT INCREASED [None]
